FAERS Safety Report 19391114 (Version 1)
Quarter: 2021Q2

REPORT INFORMATION
  Report Type: Spontaneous
  Country: US (occurrence: US)
  Receive Date: 20210608
  Receipt Date: 20210608
  Transmission Date: 20210717
  Serious: No
  Sender: FDA-Public Use
  Company Number: US-JNJFOC-20210602777

PATIENT
  Age: 21 Year
  Sex: Male

DRUGS (4)
  1. IBUPROFEN. [Suspect]
     Active Substance: IBUPROFEN
     Indication: HEADACHE
     Dosage: EVERY 5 TO 6 HOUR
     Route: 065
     Dates: start: 20210529
  2. COVID?19 VACCINE [Concomitant]
     Indication: PRODUCT USED FOR UNKNOWN INDICATION
     Route: 065
     Dates: start: 20210528
  3. IBUPROFEN. [Suspect]
     Active Substance: IBUPROFEN
     Indication: NAUSEA
  4. IBUPROFEN. [Suspect]
     Active Substance: IBUPROFEN
     Indication: PYREXIA

REACTIONS (3)
  - Headache [Not Recovered/Not Resolved]
  - Product use in unapproved indication [Unknown]
  - Therapeutic response unexpected [Unknown]

NARRATIVE: CASE EVENT DATE: 20210529
